FAERS Safety Report 12464008 (Version 1)
Quarter: 2016Q2

REPORT INFORMATION
  Report Type: Spontaneous
  Country: US (occurrence: None)
  Receive Date: 20160613
  Receipt Date: 20160613
  Transmission Date: 20160815
  Serious: Yes (Life-Threatening)
  Sender: FDA-Public Use
  Company Number: None

PATIENT
  Age: 64 Year
  Sex: Female
  Weight: 65.77 kg

DRUGS (16)
  1. PRECEDEX [Suspect]
     Active Substance: DEXMEDETOMIDINE HYDROCHLORIDE
     Indication: SEDATION
     Route: 042
     Dates: start: 20160608, end: 20160608
  2. MULTIVITAMIN [Concomitant]
     Active Substance: VITAMINS
  3. ZORVOLEX [Concomitant]
     Active Substance: DICLOFENAC
  4. ESTRADIOL/LEVONORGESTROL [Concomitant]
  5. CITRACAL [Concomitant]
     Active Substance: CALCIUM CITRATE
  6. FAMOTIDINE/CALCIUM CARBONATE/MAGNESIUM HYDROXIDE  (GENERIC PEPCID) [Concomitant]
  7. TYLENOL [Concomitant]
     Active Substance: ACETAMINOPHEN
  8. COUMADIN [Concomitant]
     Active Substance: WARFARIN SODIUM
  9. SUPER B COMPLEX [Concomitant]
     Active Substance: CYANOCOBALAMIN\DEXPANTHENOL\NIACINAMIDE\PYRIDOXINE HYDROCHLORIDE\RIBOFLAVIN 5^-PHOSPHATE SODIUM\THIAMINE HYDROCHLORIDE\VITAMIN B COMPLEX
  10. PRECEDEX [Suspect]
     Active Substance: DEXMEDETOMIDINE HYDROCHLORIDE
     Indication: SURGERY
     Route: 042
     Dates: start: 20160608, end: 20160608
  11. CLIMARA PRO [Concomitant]
     Active Substance: ESTRADIOL\LEVONORGESTREL
  12. PRECEDEX [Suspect]
     Active Substance: DEXMEDETOMIDINE HYDROCHLORIDE
     Indication: SPINAL ANAESTHESIA
     Route: 042
     Dates: start: 20160608, end: 20160608
  13. LEVOTHYROXINE. [Concomitant]
     Active Substance: LEVOTHYROXINE
  14. ATORVASTATIN [Concomitant]
     Active Substance: ATORVASTATIN
  15. VITAMIN D3 [Concomitant]
     Active Substance: CHOLECALCIFEROL
  16. STOOL SOFTENER (DOCUSATE SODIUM/SENNOSIDES) [Concomitant]

REACTIONS (2)
  - Cardiac arrest [None]
  - Hypotension [None]

NARRATIVE: CASE EVENT DATE: 20160608
